FAERS Safety Report 23162257 (Version 1)
Quarter: 2023Q4

REPORT INFORMATION
  Report Type: Spontaneous
  Country: CN (occurrence: CN)
  Receive Date: 20231109
  Receipt Date: 20231109
  Transmission Date: 20240109
  Serious: Yes (Other)
  Sender: FDA-Public Use
  Company Number: CN-002147023-NVSC2023CN236004

PATIENT
  Age: 69 Year
  Sex: Female
  Weight: 65 kg

DRUGS (1)
  1. SACUBITRIL\VALSARTAN [Suspect]
     Active Substance: SACUBITRIL\VALSARTAN
     Indication: Cardiac failure
     Dosage: 50 MG, BID
     Route: 048
     Dates: start: 20231016, end: 20231019

REACTIONS (7)
  - Hypotension [Not Recovered/Not Resolved]
  - Arrhythmia [Unknown]
  - Heart rate increased [Unknown]
  - Cardiomegaly [Unknown]
  - Rales [Unknown]
  - Volume blood decreased [Unknown]
  - Scar [Unknown]

NARRATIVE: CASE EVENT DATE: 20231019
